FAERS Safety Report 8765527 (Version 1)
Quarter: 2012Q4

REPORT INFORMATION
  Report Type: 
  Country: CA (occurrence: CA)
  Receive Date: 20120903
  Receipt Date: 20120903
  Transmission Date: 20130627
  Serious: Yes (Other)
  Sender: FDA-Public Use
  Company Number: CA-BRISTOL-MYERS SQUIBB COMPANY-16899791

PATIENT
  Age: 53 Year
  Sex: Male

DRUGS (6)
  1. ORENCIA [Suspect]
     Indication: RHEUMATOID ARTHRITIS
     Dosage: Inf: 4
     Route: 042
     Dates: start: 2011
  2. METHOTREXATE TABS [Concomitant]
  3. MELOXICAM [Concomitant]
  4. ARAVA [Concomitant]
  5. ACTONEL [Concomitant]
  6. HYDROXYQUINOLINE SULFATE [Concomitant]

REACTIONS (2)
  - Muscular weakness [Unknown]
  - Paralysis [Unknown]
